FAERS Safety Report 5762080-0 (Version None)
Quarter: 2008Q2

REPORT INFORMATION
  Report Type: 
  Country: None (occurrence: None)
  Receive Date: 20080604
  Receipt Date: 20080526
  Transmission Date: 20081010
  Serious: Yes (Other)
  Sender: FDA-Public Use
  Company Number: 2008AP000225

PATIENT
  Age: 30 Year
  Sex: Male

DRUGS (6)
  1. PAROXETINE HCL [Suspect]
     Indication: ANXIETY
     Dosage: PO
     Route: 048
     Dates: start: 19991206
  2. AMITRIPTLINE HCL [Concomitant]
  3. CITALOPRAM HYDROBROMIDE [Concomitant]
  4. VENLAFAXINE HCL [Concomitant]
  5. SERTRALINE HYDROCHLORIDE [Concomitant]
  6. FLUOXETINE HCL [Concomitant]

REACTIONS (38)
  - AGGRESSION [None]
  - AGITATION [None]
  - ANOREXIA [None]
  - ARTHRALGIA [None]
  - DEREALISATION [None]
  - DIARRHOEA [None]
  - DISORIENTATION [None]
  - DIZZINESS POSTURAL [None]
  - DRUG INEFFECTIVE [None]
  - DRUG WITHDRAWAL SYNDROME [None]
  - EMOTIONAL DISORDER [None]
  - FEELING DRUNK [None]
  - GINGIVAL PAIN [None]
  - HEADACHE [None]
  - HYPERHIDROSIS [None]
  - HYPOAESTHESIA [None]
  - IMPAIRED WORK ABILITY [None]
  - INFLUENZA LIKE ILLNESS [None]
  - INSOMNIA [None]
  - IRRITABILITY [None]
  - JAW DISORDER [None]
  - LIBIDO DECREASED [None]
  - MANIA [None]
  - NAUSEA [None]
  - PAIN IN EXTREMITY [None]
  - PALPITATIONS [None]
  - PARAESTHESIA [None]
  - PARANOIA [None]
  - PERSONALITY CHANGE [None]
  - RASH [None]
  - RESTLESS LEGS SYNDROME [None]
  - SEROTONIN SYNDROME [None]
  - SUICIDAL IDEATION [None]
  - THIRST [None]
  - TINNITUS [None]
  - TREMOR [None]
  - VISUAL DISTURBANCE [None]
  - WEIGHT DECREASED [None]
